FAERS Safety Report 9281720 (Version 2)
Quarter: 2014Q1

REPORT INFORMATION
  Report Type: Spontaneous
  Country: US (occurrence: US)
  Receive Date: 20130510
  Receipt Date: 20140129
  Transmission Date: 20141002
  Serious: Yes (Hospitalization, Other)
  Sender: FDA-Public Use
  Company Number: US-B.I. PHARMACEUTICALS,INC./RIDGEFIELD-2013-BI-12877BP

PATIENT
  Age: 75 Year
  Sex: Male
  Weight: 102.06 kg

DRUGS (10)
  1. PRADAXA [Suspect]
     Indication: ANTICOAGULANT THERAPY
     Dosage: 150 MG
     Route: 048
     Dates: start: 20110628, end: 20111011
  2. PRADAXA [Suspect]
     Indication: ATRIAL FIBRILLATION
     Dosage: 150 MG
     Dates: start: 20111011, end: 20111130
  3. LIPITOR [Concomitant]
     Dosage: 20 MG
     Route: 048
  4. LASIX [Concomitant]
     Dosage: 20 MG
     Route: 048
  5. LISINOPRIL [Concomitant]
     Dosage: 40 MG
     Route: 048
  6. LOPRESSOR [Concomitant]
     Dosage: 50 MG
     Route: 048
  7. POTASSIUM CHLORIDE [Concomitant]
     Dosage: 20 MEQ
  8. BABY ASPIRIN [Concomitant]
     Dosage: 81 MG
     Route: 048
  9. COREG [Concomitant]
     Dosage: 12.5 MG
     Route: 048
  10. HYDROCHLOROTHIAZIDE [Concomitant]
     Dosage: 12.5 MG
     Route: 048

REACTIONS (8)
  - Lower gastrointestinal haemorrhage [Unknown]
  - Haematuria [Unknown]
  - Urinary tract infection [Unknown]
  - Haematuria [Recovered/Resolved]
  - Gastrointestinal haemorrhage [Recovered/Resolved]
  - Haemorrhagic anaemia [Unknown]
  - Renal failure acute [Unknown]
  - Catheter site haemorrhage [Recovered/Resolved]
